FAERS Safety Report 6383351-3 (Version None)
Quarter: 2009Q4

REPORT INFORMATION
  Report Type: 
  Country: None (occurrence: None)
  Receive Date: 20091001
  Receipt Date: 20090919
  Transmission Date: 20100525
  Serious: Yes (Hospitalization, Other)
  Sender: FDA-Public Use
  Company Number: PHHY2009AU18586

PATIENT
  Sex: Male

DRUGS (8)
  1. EXELON [Suspect]
     Indication: DEMENTIA ALZHEIMER'S TYPE
     Dosage: 3 MG, TID
     Route: 048
  2. EXELON [Suspect]
     Dosage: 3 MG, QD
     Route: 048
  3. EXELON [Suspect]
     Dosage: 3 MG, TID
     Route: 048
  4. EXELON [Suspect]
     Dosage: 1 MG, UNK
     Route: 048
  5. EXELON [Suspect]
     Dosage: 6 MG, BID
     Route: 048
  6. ZOLOFT [Concomitant]
     Dosage: 50 MG
     Dates: start: 20070629
  7. ATACAND [Concomitant]
     Dosage: 8 MG
     Dates: start: 20080603
  8. ACTONEL WITH CALCIUM (COPACKAGED) [Concomitant]
     Indication: BONE DISORDER
     Dosage: UNK
     Dates: start: 20081129

REACTIONS (6)
  - ABNORMAL BEHAVIOUR [None]
  - BLOOD POTASSIUM INCREASED [None]
  - DIARRHOEA [None]
  - HALLUCINATION, VISUAL [None]
  - SKIN ULCER [None]
  - VOMITING [None]
